FAERS Safety Report 25155134 (Version 1)
Quarter: 2025Q2

REPORT INFORMATION
  Report Type: Spontaneous
  Country: US (occurrence: None)
  Receive Date: 20250402
  Receipt Date: 20250402
  Transmission Date: 20250716
  Serious: Yes (Other)
  Sender: FDA-CTU
  Company Number: None

PATIENT
  Age: 60 Year
  Sex: Male

DRUGS (4)
  1. OZEMPIC [Suspect]
     Active Substance: SEMAGLUTIDE
     Indication: Diabetes mellitus
     Route: 058
     Dates: start: 20250324, end: 20250324
  2. MOUNJARO [Concomitant]
     Active Substance: TIRZEPATIDE
  3. HYDROCODONE [Concomitant]
     Active Substance: HYDROCODONE
  4. UNSPECIFIED INGREDIENT [Concomitant]
     Active Substance: UNSPECIFIED INGREDIENT

REACTIONS (4)
  - Dysphagia [None]
  - Vomiting projectile [None]
  - Flatulence [None]
  - Anal incontinence [None]

NARRATIVE: CASE EVENT DATE: 20250324
